FAERS Safety Report 16184019 (Version 1)
Quarter: 2019Q2

REPORT INFORMATION
  Report Type: Spontaneous
  Country: ES (occurrence: ES)
  Receive Date: 20190411
  Receipt Date: 20190411
  Transmission Date: 20190711
  Serious: Yes (Other)
  Sender: FDA-Public Use
  Company Number: ES-AMREGENT-20190664

PATIENT
  Age: 84 Year
  Sex: Female

DRUGS (1)
  1. FERINJECT [Suspect]
     Active Substance: FERRIC CARBOXYMALTOSE
     Dosage: 4 GRAM
     Route: 042

REACTIONS (5)
  - Inappropriate schedule of product administration [Unknown]
  - Cardiac failure [Unknown]
  - Overdose [Unknown]
  - Transaminases increased [Unknown]
  - Serum ferritin increased [Unknown]
